APPROVED DRUG PRODUCT: LEVATOL
Active Ingredient: PENBUTOLOL SULFATE
Strength: 10MG **Federal Register determination that product was not discontinued or withdrawn for safety or effectiveness reasons**
Dosage Form/Route: TABLET;ORAL
Application: N018976 | Product #001
Applicant: ENDO OPERATIONS LTD
Approved: Dec 30, 1987 | RLD: Yes | RS: No | Type: DISCN